FAERS Safety Report 11574379 (Version 1)
Quarter: 2015Q3

REPORT INFORMATION
  Report Type: Spontaneous
  Country: US (occurrence: None)
  Receive Date: 20150929
  Receipt Date: 20150929
  Transmission Date: 20151125
  Serious: Yes (Disabling)
  Sender: FDA-Public Use
  Company Number: None

PATIENT
  Age: 72 Year
  Sex: Male
  Weight: 122.02 kg

DRUGS (13)
  1. VICTOZA [Suspect]
     Active Substance: LIRAGLUTIDE
     Indication: DIABETES MELLITUS INADEQUATE CONTROL
     Dosage: TAKE AS NEEDED ?PEN?DAILY?THROUGH INJECTION?THERAPY?APRIL 1ST WEEK
  2. ZOLOFT [Concomitant]
     Active Substance: SERTRALINE HYDROCHLORIDE
  3. GLIMERPRIDE ER [Concomitant]
  4. VICTOZA [Suspect]
     Active Substance: LIRAGLUTIDE
     Indication: PROSTATE CANCER
     Dosage: TAKE AS NEEDED ?PEN?DAILY?THROUGH INJECTION?THERAPY?APRIL 1ST WEEK
  5. CARVEDILOL. [Concomitant]
     Active Substance: CARVEDILOL
  6. ASPERINE [Concomitant]
  7. SERTRALINE [Concomitant]
     Active Substance: SERTRALINE HYDROCHLORIDE
  8. HYDROCERISONE [Concomitant]
  9. AMLODIPINE [Concomitant]
     Active Substance: AMLODIPINE BESYLATE
  10. LANTIS SLIDING SCALE [Concomitant]
  11. FONOFEBROKE [Concomitant]
  12. NOVALOG SLIDING SCALE [Concomitant]
  13. AVASTIN [Concomitant]
     Active Substance: BEVACIZUMAB

REACTIONS (2)
  - Adverse event [None]
  - Prostatic disorder [None]

NARRATIVE: CASE EVENT DATE: 20150315
